FAERS Safety Report 6547211-7 (Version None)
Quarter: 2010Q1

REPORT INFORMATION
  Report Type: 
  Country: None (occurrence: None)
  Receive Date: 20100122
  Receipt Date: 20100111
  Transmission Date: 20100710
  Serious: Yes (Hospitalization)
  Sender: FDA-Public Use
  Company Number: US-JNJFOC-20100103051

PATIENT
  Sex: Female
  Weight: 130.2 kg

DRUGS (9)
  1. INFLIXIMAB [Suspect]
     Indication: INFLAMMATORY BOWEL DISEASE
     Route: 042
  2. PREDNISONE TAB [Concomitant]
  3. ORTHO EVRA [Concomitant]
  4. VITAMIN D [Concomitant]
  5. IMURAN [Concomitant]
  6. PREVACID [Concomitant]
  7. TOPIRAMATE [Concomitant]
  8. EPIPEN [Concomitant]
  9. TRAZODONE [Concomitant]

REACTIONS (1)
  - SWELLING FACE [None]
